FAERS Safety Report 21447858 (Version 1)
Quarter: 2022Q4

REPORT INFORMATION
  Report Type: Spontaneous
  Country: DE (occurrence: DE)
  Receive Date: 20221012
  Receipt Date: 20221012
  Transmission Date: 20230112
  Serious: Yes (Hospitalization)
  Sender: FDA-Public Use
  Company Number: DE-ADRED-07810-01

PATIENT
  Age: 80 Year
  Sex: Female
  Weight: 80 kg

DRUGS (9)
  1. PREDNISOLONE [Suspect]
     Active Substance: PREDNISOLONE
     Indication: Product used for unknown indication
     Dosage: 5 MILLIGRAM DAILY; 5 MG, 1-0-0-0
  2. CANDESARTAN [Suspect]
     Active Substance: CANDESARTAN
     Indication: Product used for unknown indication
     Dosage: .5 DOSAGE FORMS DAILY; 8 MG, 0-0-0.5-0
  3. TORSEMIDE [Suspect]
     Active Substance: TORSEMIDE
     Indication: Product used for unknown indication
     Dosage: 4 DOSAGE FORMS DAILY; 10 MG, 2-2-0-0
  4. ASPIRIN [Concomitant]
     Active Substance: ASPIRIN
     Indication: Product used for unknown indication
     Dosage: 100 MILLIGRAM DAILY; 100 MG, 1-0-0-0,  ACETYLSALICYLSAURE
  5. Calcium carbonate/calcium gluconate-calcium lactate mixture [Concomitant]
     Indication: Product used for unknown indication
     Dosage: 1 DOSAGE FORMS DAILY; 300|2945.15 MG, 0-1-0-0, CALCIUMCARBONAT/CALCIUMGLUCONAT-CALCIUMLACTAT-GEMISCH
  6. METAMIZOLE [Concomitant]
     Active Substance: METAMIZOLE
     Indication: Product used for unknown indication
     Dosage: 2000 MILLIGRAM DAILY; 500 MG, 1-1-1-1, DROPS
  7. BUPRENORPHINE [Concomitant]
     Active Substance: BUPRENORPHINE
     Indication: Product used for unknown indication
     Dosage: 0.0525 MG/H, ACCORDING TO SCHEME
  8. Magnesium Aspartate/Magnesium Citrate [Concomitant]
     Indication: Product used for unknown indication
     Dosage: 243.05 MILLIGRAM DAILY; 243.05 MG, 0-0-1-0,  , MAGNESIUMASPARTAT/MAGNESIUMCITRAT
  9. METOPROLOL [Concomitant]
     Active Substance: METOPROLOL
     Indication: Product used for unknown indication
     Dosage: .5 DOSAGE FORMS DAILY; 47.5 MG, 0.5-0-0-0

REACTIONS (3)
  - Cholecystitis acute [Unknown]
  - Abdominal pain upper [Unknown]
  - Acute kidney injury [Unknown]

NARRATIVE: CASE EVENT DATE: 20210520
